FAERS Safety Report 8613892-7 (Version None)
Quarter: 2012Q3

REPORT INFORMATION
  Report Type: 
  Country: None (occurrence: None)
  Receive Date: 20120823
  Receipt Date: 20120810
  Transmission Date: 20120928
  Serious: Yes (Hospitalization, Disabling, Other)
  Sender: FDA-Public Use
  Company Number: IE-009507513-1201GBR00008

PATIENT

DRUGS (1)
  1. ALENDRONATE SODIUM/CHOLECALCIFEROL [Suspect]
     Indication: OSTEOPOROSIS
     Dosage: 70MG/2800
     Route: 048
     Dates: start: 20050301, end: 20120201

REACTIONS (1)
  - FEMUR FRACTURE [None]
